FAERS Safety Report 7455492-0 (Version None)
Quarter: 2011Q2

REPORT INFORMATION
  Report Type: 
  Country: None (occurrence: None)
  Receive Date: 20110503
  Receipt Date: 20110428
  Transmission Date: 20111010
  Serious: Yes (Hospitalization)
  Sender: FDA-Public Use
  Company Number: CA-ABBOTT-11P-028-0722536-00

PATIENT
  Sex: Female
  Weight: 81.266 kg

DRUGS (1)
  1. HUMIRA [Suspect]
     Indication: RHEUMATOID ARTHRITIS
     Route: 058
     Dates: start: 20040707, end: 20110324

REACTIONS (2)
  - VOMITING [None]
  - IRRITABLE BOWEL SYNDROME [None]
